FAERS Safety Report 6907296-2 (Version None)
Quarter: 2010Q3

REPORT INFORMATION
  Report Type: 
  Country: None (occurrence: None)
  Receive Date: 20100730
  Receipt Date: 20100716
  Transmission Date: 20110219
  Serious: Yes (Death, Life-Threatening, Hospitalization, Other)
  Sender: FDA-Public Use
  Company Number: 2009AC000309

PATIENT
  Age: 45 Year
  Sex: Female

DRUGS (13)
  1. DIGOXIN [Suspect]
     Dosage: 0.125 MG; PO
     Route: 048
     Dates: start: 20030801, end: 20070601
  2. DIGOXIN [Suspect]
     Indication: ATRIAL FIBRILLATION
     Dosage: 0.125 MG; PO
     Route: 048
     Dates: start: 20030601, end: 20070601
  3. SYMBYAX [Concomitant]
  4. TOPROL-XL [Concomitant]
  5. AMIODARONE HCL [Concomitant]
  6. LASIX [Concomitant]
  7. VANCOMYCIN [Concomitant]
  8. CLINDAMYCIN [Concomitant]
  9. INSULIN [Concomitant]
  10. WELLBUTRIN [Concomitant]
  11. CELEXA [Concomitant]
  12. CARDIZEM [Concomitant]
  13. CIPROFLOXACIN [Concomitant]

REACTIONS (20)
  - ANAEMIA [None]
  - ANXIETY [None]
  - ARTERIOSCLEROSIS CORONARY ARTERY [None]
  - ATRIOVENTRICULAR BLOCK FIRST DEGREE [None]
  - CARDIAC FAILURE CONGESTIVE [None]
  - CELLULITIS [None]
  - DEPRESSION [None]
  - DILATATION ATRIAL [None]
  - ECONOMIC PROBLEM [None]
  - EYE HAEMORRHAGE [None]
  - ISCHAEMIC CARDIOMYOPATHY [None]
  - LEFT VENTRICULAR HYPERTROPHY [None]
  - MULTIPLE INJURIES [None]
  - PERIPHERAL ARTERIAL OCCLUSIVE DISEASE [None]
  - PLEURAL EFFUSION [None]
  - POST PROCEDURAL INFECTION [None]
  - RENAL FAILURE CHRONIC [None]
  - SEPSIS [None]
  - SICK SINUS SYNDROME [None]
  - WOUND INFECTION [None]
